FAERS Safety Report 21526574 (Version 1)
Quarter: 2022Q4

REPORT INFORMATION
  Report Type: Report from Study
  Country: US (occurrence: US)
  Receive Date: 20221031
  Receipt Date: 20221031
  Transmission Date: 20230113
  Serious: No
  Sender: FDA-Public Use
  Company Number: US-ABBVIE-4150378

PATIENT
  Sex: Female

DRUGS (3)
  1. HUMIRA [Suspect]
     Active Substance: ADALIMUMAB
     Indication: Colitis ulcerative
     Dosage: FORM STRENGTH 40MG?CITRATE FREE
     Route: 058
  2. COVID-19 VACCINE [Concomitant]
     Indication: COVID-19 immunisation
     Dosage: ONE IN ONCE FREQUENCY ?FIRST DOSE
     Route: 030
  3. COVID-19 VACCINE [Concomitant]
     Indication: COVID-19 immunisation
     Dosage: ONE IN ONCE FREQUENCY ?BOOSTER DOSE
     Route: 030

REACTIONS (2)
  - Blood pressure fluctuation [Recovering/Resolving]
  - Unevaluable event [Recovering/Resolving]

NARRATIVE: CASE EVENT DATE: 20220101
